FAERS Safety Report 4669009-7 (Version None)
Quarter: 2005Q2

REPORT INFORMATION
  Report Type: 
  Country: None (occurrence: None)
  Receive Date: 20050523
  Receipt Date: 20050512
  Transmission Date: 20051028
  Serious: Yes (Other)
  Sender: FDA-Public Use
  Company Number: JP-JNJFOC-20050504246

PATIENT
  Age: 41 Year
  Sex: Male

DRUGS (4)
  1. RISPERDAL [Suspect]
     Route: 049
  2. CARBAMAZEPINE [Suspect]
     Route: 049
  3. CARBAMAZEPINE [Suspect]
     Route: 049
  4. HALOPERIDOL [Concomitant]

REACTIONS (2)
  - CYANOSIS [None]
  - VENTRICULAR EXTRASYSTOLES [None]
